FAERS Safety Report 4604727-8 (Version None)
Quarter: 2005Q1

REPORT INFORMATION
  Report Type: 
  Country: None (occurrence: None)
  Receive Date: 20050217
  Receipt Date: 20041102
  Transmission Date: 20050727
  Serious: No
  Sender: FDA-Public Use
  Company Number: S04-USA-07265-01

PATIENT
  Age: 85 Year
  Sex: Female

DRUGS (6)
  1. NAMENDA [Suspect]
     Indication: DEMENTIA
     Dosage: 10 MG BID PO
     Route: 048
  2. NAMENDA [Suspect]
     Indication: DEMENTIA
     Dates: start: 20040301, end: 20040101
  3. ARICEPT [Concomitant]
  4. COREG [Concomitant]
  5. RAMIPRIL [Concomitant]
  6. VITAMIN E [Concomitant]

REACTIONS (1)
  - CONFUSIONAL STATE [None]
